FAERS Safety Report 24141524 (Version 1)
Quarter: 2024Q3

REPORT INFORMATION
  Report Type: Spontaneous
  Country: GB (occurrence: GB)
  Receive Date: 20240726
  Receipt Date: 20240726
  Transmission Date: 20241017
  Serious: Yes (Other)
  Sender: RANBAXY
  Company Number: GB-SUN PHARMACEUTICAL INDUSTRIES LTD-2024RR-459006

PATIENT
  Age: 45 Year
  Sex: Female
  Weight: 111 kg

DRUGS (8)
  1. CODEINE [Suspect]
     Active Substance: CODEINE
     Indication: Ill-defined disorder
     Dosage: 15 MILLIGRAM
     Route: 065
     Dates: start: 20240621
  2. NEVANAC [Concomitant]
     Active Substance: NEPAFENAC
     Indication: Ill-defined disorder
     Dosage: ONE DROP TWICE DAILY AS DIRECTED BY MOORFIELDS
     Route: 065
     Dates: start: 20240709
  3. TIMOLOL [Concomitant]
     Active Substance: TIMOLOL
     Indication: Ill-defined disorder
     Dosage: ONE DROP ONCE DAILY
     Route: 065
     Dates: start: 20220322
  4. AMITRIPTYLINE [Concomitant]
     Active Substance: AMITRIPTYLINE
     Indication: Ill-defined disorder
     Dosage: TAKE ONE AT NIGHT
     Route: 065
     Dates: start: 20240709
  5. PANTOPRAZOLE [Concomitant]
     Active Substance: PANTOPRAZOLE
     Indication: Ill-defined disorder
     Dosage: ONE TO BE TAKEN EACH MORNING
     Route: 065
     Dates: start: 20220125
  6. TROSPIUM [Concomitant]
     Active Substance: TROSPIUM
     Indication: Ill-defined disorder
     Dosage: ONE TO BE TAKEN TWICE A DAY BEFORE FOOD
     Route: 065
     Dates: start: 20220606
  7. FOLIC ACID [Concomitant]
     Active Substance: FOLIC ACID
     Indication: Ill-defined disorder
     Dosage: ONE TO BE TAKEN EACH DAY
     Route: 065
     Dates: start: 20221019
  8. KETOROLAC [Concomitant]
     Active Substance: KETOROLAC TROMETHAMINE
     Indication: Ill-defined disorder
     Dosage: INSTIL ONE DROP TO THE RIGHT EYE TWICE DAILY AS...
     Route: 065
     Dates: start: 20230510, end: 20240513

REACTIONS (1)
  - Haemorrhage [Recovered/Resolved]
